FAERS Safety Report 5097526-7 (Version None)
Quarter: 2006Q3

REPORT INFORMATION
  Report Type: 
  Country: None (occurrence: None)
  Receive Date: 20060901
  Receipt Date: 20060821
  Transmission Date: 20061208
  Serious: Yes (Hospitalization)
  Sender: FDA-Public Use
  Company Number: 0157473A

PATIENT
  Sex: Male

DRUGS (2)
  1. COLGATE TOTAL [Suspect]
     Indication: DENTAL PLAQUE
     Dosage: ORAL
     Route: 048
  2. COLGATE TOTAL [Suspect]
     Indication: GINGIVITIS
     Dosage: ORAL
     Route: 048

REACTIONS (2)
  - SQUAMOUS CELL CARCINOMA [None]
  - TONGUE OPERATION [None]
